FAERS Safety Report 6232399-8 (Version None)
Quarter: 2009Q2

REPORT INFORMATION
  Report Type: 
  Country: None (occurrence: None)
  Receive Date: 20090617
  Receipt Date: 20090613
  Transmission Date: 20091009
  Serious: Yes (Death)
  Sender: FDA-Public Use
  Company Number: PHHY2009BR23481

PATIENT
  Sex: Female

DRUGS (3)
  1. EXFORGE [Suspect]
     Route: 048
  2. DIOVAN [Suspect]
     Dosage: UNK
     Dates: start: 20090201
  3. ANTIHYPERTENSIVES [Concomitant]
     Dosage: UNK
     Dates: start: 20090201

REACTIONS (3)
  - ASPIRATION [None]
  - CEREBROVASCULAR ACCIDENT [None]
  - SYNCOPE [None]
